FAERS Safety Report 8357995-3 (Version None)
Quarter: 2012Q2

REPORT INFORMATION
  Report Type: 
  Country: None (occurrence: None)
  Receive Date: 20120511
  Receipt Date: 20120501
  Transmission Date: 20120825
  Serious: Yes (Other)
  Sender: FDA-Public Use
  Company Number: AUR-APL-2012-00563

PATIENT
  Age: 76 Year
  Sex: Male
  Weight: 77.1 kg

DRUGS (18)
  1. LOSARTAN POTASSIUM [Suspect]
     Indication: HYPERTENSION
     Dosage: (100 MG, 1 D), ORAL
     Route: 048
     Dates: start: 20120101, end: 20120111
  2. CIALIS [Concomitant]
  3. GLUCOPHAGE [Concomitant]
  4. GLYBURIDE [Concomitant]
  5. MAVIK [Concomitant]
  6. INSULIN (INSULIN) [Concomitant]
  7. METOPROLOL TARTRATE [Concomitant]
  8. CO-Q-10 (UBIDECARENONE) [Concomitant]
  9. ACTOS [Concomitant]
  10. LOPRESSOR [Concomitant]
  11. PLAVIX [Concomitant]
  12. ALPROSTADIL/PAPAVERINE HCL/PHENTOLAMINE MESILATE (TRIMIX) [Concomitant]
  13. TRANDOLAPRIL [Suspect]
     Indication: HYPERTENSION
     Dates: start: 20070101
  14. CELEBREX [Concomitant]
  15. CLARINEX (NARINE) [Concomitant]
  16. DOXYCYCLINE [Concomitant]
  17. COZAAR [Suspect]
     Indication: PRODUCT USED FOR UNKNOWN INDICATION
     Dosage: (100 MG, AT BED TIME), ORAL
     Route: 048
     Dates: start: 20120101
  18. LEVEMIR [Concomitant]

REACTIONS (3)
  - BLOOD PRESSURE SYSTOLIC INCREASED [None]
  - HYPOGLYCAEMIA [None]
  - HEADACHE [None]
